FAERS Safety Report 19298529 (Version 3)
Quarter: 2021Q4

REPORT INFORMATION
  Report Type: Spontaneous
  Country: GB (occurrence: GB)
  Receive Date: 20210525
  Receipt Date: 20211019
  Transmission Date: 20220303
  Serious: Yes (Hospitalization)
  Sender: FDA-Public Use
  Company Number: GB-ALNYLAM PHARMACEUTICALS, INC.-ALN-2021-001208

PATIENT

DRUGS (2)
  1. ONPATTRO [Suspect]
     Active Substance: PATISIRAN SODIUM
     Indication: Amyloidosis
     Dosage: 21.6 MILLIGRAM, Q3W
     Route: 042
  2. ONPATTRO [Suspect]
     Active Substance: PATISIRAN SODIUM
     Dosage: 21.6 MILLIGRAM, Q3W
     Route: 042
     Dates: start: 20210125

REACTIONS (4)
  - Tachycardia [Recovering/Resolving]
  - Complication associated with device [Recovering/Resolving]
  - Cardiac disorder [Unknown]
  - Cardiac pacemaker replacement [Recovered/Resolved]

NARRATIVE: CASE EVENT DATE: 20210914
